FAERS Safety Report 22155332 (Version 1)
Quarter: 2023Q1

REPORT INFORMATION
  Report Type: Spontaneous
  Country: US (occurrence: None)
  Receive Date: 20230329
  Receipt Date: 20230329
  Transmission Date: 20230417
  Serious: Yes (Other)
  Sender: FDA-Public Use
  Company Number: None

PATIENT
  Age: 36 Year
  Sex: Male
  Weight: 78.75 kg

DRUGS (2)
  1. QUETIAPINE [Suspect]
     Active Substance: QUETIAPINE
     Indication: Insomnia
     Route: 048
  2. QUETIAPINE [Suspect]
     Active Substance: QUETIAPINE
     Indication: Anxiety

REACTIONS (13)
  - Bone pain [None]
  - Depression [None]
  - Dizziness [None]
  - Arthralgia [None]
  - Myalgia [None]
  - Walking aid user [None]
  - Lactose intolerance [None]
  - Reaction to excipient [None]
  - Fatigue [None]
  - Peripheral coldness [None]
  - Pain in extremity [None]
  - Pain in extremity [None]
  - Hypersomnia [None]
